FAERS Safety Report 6435810-2 (Version None)
Quarter: 2009Q4

REPORT INFORMATION
  Report Type: 
  Country: None (occurrence: None)
  Receive Date: 20091111
  Receipt Date: 20091105
  Transmission Date: 20100525
  Serious: Yes (Hospitalization)
  Sender: FDA-Public Use
  Company Number: DE-BRISTOL-MYERS SQUIBB COMPANY-14845846

PATIENT
  Sex: Female

DRUGS (4)
  1. ABILIFY [Suspect]
     Dosage: DOSE REDUCED TO 10 MG ABILIFY 15MG STARTED AS MONOTHERAPY
  2. CLOZAPINE [Suspect]
  3. OLANZAPINE [Suspect]
  4. VENLAFAXINE HCL [Suspect]

REACTIONS (2)
  - CARDIOMYOPATHY [None]
  - OCULOGYRIC CRISIS [None]
